FAERS Safety Report 23032383 (Version 1)
Quarter: 2023Q4

REPORT INFORMATION
  Report Type: Spontaneous
  Country: GB (occurrence: GB)
  Receive Date: 20231005
  Receipt Date: 20231005
  Transmission Date: 20240110
  Serious: Yes (Other)
  Sender: FDA-Public Use
  Company Number: None

PATIENT
  Age: 87 Year
  Sex: Female
  Weight: 68 kg

DRUGS (20)
  1. MIRTAZAPINE [Suspect]
     Active Substance: MIRTAZAPINE
     Indication: Product used for unknown indication
     Dosage: 15 MILLIGRAM, QD(AT NIGHT)
     Route: 065
     Dates: start: 20230921, end: 20230927
  2. BUMETANIDE [Concomitant]
     Active Substance: BUMETANIDE
     Dosage: 1 DOSAGE FORM, QD(EACH MORNING)
     Route: 065
     Dates: start: 20230711, end: 20230905
  3. CEPHALEXIN [Concomitant]
     Active Substance: CEPHALEXIN
     Dosage: 10 MILLILITER, BID
     Route: 065
     Dates: start: 20230727, end: 20230801
  4. DOCUSATE SODIUM [Concomitant]
     Active Substance: DOCUSATE SODIUM
     Dosage: 2 DOSAGE FORM, BID
     Route: 065
     Dates: start: 20230927
  5. FENBID [Concomitant]
     Dosage: 1 DOSAGE FORM, TID(APPLY TO PAINFUL AREA)
     Route: 061
     Dates: start: 20230907
  6. FENTANYL [Concomitant]
     Active Substance: FENTANYL
     Dosage: 12.5 MICROGRAM(ANTICIPATORY MEDICATION)
     Route: 058
     Dates: start: 20230727, end: 20230803
  7. FOLIC ACID [Concomitant]
     Active Substance: FOLIC ACID
     Dosage: 1 DOSAGE FORM, QD(IN THE MORNING)
     Route: 065
     Dates: start: 20230317
  8. FOSFOMYCIN [Concomitant]
     Active Substance: FOSFOMYCIN
     Indication: Urinary tract infection
     Dosage: 2ND LINE IF }65 OR RISK FACTO...
     Route: 065
     Dates: start: 20230927
  9. BUTYLSCOPOLAMINE BROMIDE [Concomitant]
     Active Substance: BUTYLSCOPOLAMINE BROMIDE
     Dosage: 1 MILLILITER(ANTICIPATORY MEDICATION)
     Route: 065
     Dates: start: 20230727, end: 20230801
  10. LACTULOSE [Concomitant]
     Active Substance: LACTULOSE
     Dosage: 20 MILLILITER, TID
     Route: 065
     Dates: start: 20230727
  11. POLYETHYLENE GLYCOL 3350\POTASSIUM CHLORIDE\SODIUM BICARBONATE\SODIUM [Concomitant]
     Active Substance: POLYETHYLENE GLYCOL 3350\POTASSIUM CHLORIDE\SODIUM BICARBONATE\SODIUM CHLORIDE
     Dosage: MAINTENANCE TWO SACHETS DAILY IN DIVIDED DOSES
     Route: 065
     Dates: start: 20230418, end: 20230727
  12. LEVOMEPROMAZINE [Concomitant]
     Active Substance: LEVOMEPROMAZINE
     Dosage: 0.25 MILLILITER(ANTICIPATORY MEDICATION)
     Route: 065
     Dates: start: 20230727, end: 20230801
  13. LEVOTHYROXINE [Concomitant]
     Active Substance: LEVOTHYROXINE
     Dosage: 1 DOSAGE FORM, QD(EACH MORNING HALF AN HOUR BEFORE FOOD )
     Route: 065
     Dates: start: 20230317
  14. MIDAZOLAM [Concomitant]
     Active Substance: MIDAZOLAM
     Dosage: 0.5 MILLILITER(ANTICIPATORY MEDICATION)
     Route: 065
     Dates: start: 20230727, end: 20230801
  15. MIRTAZAPINE [Concomitant]
     Active Substance: MIRTAZAPINE
     Dosage: 1 DOSAGE FORM, QD(AT NIGHT)
     Route: 065
     Dates: start: 20230921, end: 20230927
  16. OMEPRAZOLE [Concomitant]
     Active Substance: OMEPRAZOLE
     Dosage: 2 DOSAGE FORM, BID
     Route: 065
     Dates: start: 20230317
  17. ACETAMINOPHEN [Concomitant]
     Active Substance: ACETAMINOPHEN
     Dosage: TAKE ONE OR TWO TABLETS UP TO FOUR TIMES A DAY
     Route: 065
     Dates: start: 20230317
  18. AMDINOCILLIN PIVOXIL [Concomitant]
     Active Substance: AMDINOCILLIN PIVOXIL
     Indication: Urinary tract infection
     Dosage: 2ND LINE IF }65 OR RISK FACTO...
     Route: 065
     Dates: start: 20230712, end: 20230715
  19. RIFAXIMIN [Concomitant]
     Active Substance: RIFAXIMIN
     Dosage: 1 DOSAGE FORM, BID(IN THE MORNING AND ONE AT TEATIME)
     Route: 065
     Dates: start: 20230317
  20. SENNA [Concomitant]
     Active Substance: SENNA LEAF\SENNOSIDES\SENNOSIDES A AND B
     Indication: Constipation
     Dosage: TAKE ONE OR TWO TABLETS AT NIGHT FOR CONSTIPATI
     Route: 065
     Dates: start: 20230927

REACTIONS (2)
  - Jaundice [Unknown]
  - Sedation [Unknown]
